FAERS Safety Report 20820285 (Version 1)
Quarter: 2022Q2

REPORT INFORMATION
  Report Type: Spontaneous
  Country: US (occurrence: US)
  Receive Date: 20220512
  Receipt Date: 20220512
  Transmission Date: 20220721
  Serious: No
  Sender: FDA-Public Use
  Company Number: US-PFIZER INC-202200021784

PATIENT
  Age: 51 Year
  Sex: Male
  Weight: 68.49 kg

DRUGS (11)
  1. CLINDAMYCIN [Suspect]
     Active Substance: CLINDAMYCIN
     Dosage: 300 MG, 3X/DAY (300MG CAPSULE/ 1 BY MOUTH 3 TIMES DAILY)
     Route: 048
  2. GABAPENTIN [Suspect]
     Active Substance: GABAPENTIN
     Dosage: 600 MG, 3X/DAY
     Dates: start: 202106
  3. PANTOPRAZOLE [Suspect]
     Active Substance: PANTOPRAZOLE
     Dosage: 40 MG, 1X/DAY
  4. ONDANSETRON [Suspect]
     Active Substance: ONDANSETRON
     Dosage: 4 MG
  5. OMEPRAZOLE [Suspect]
     Active Substance: OMEPRAZOLE
     Indication: Dyspepsia
     Dosage: UNK
  6. OMEPRAZOLE [Suspect]
     Active Substance: OMEPRAZOLE
     Indication: Flatulence
  7. CHOLESTYRAMINE [Suspect]
     Active Substance: CHOLESTYRAMINE
     Dosage: UNK, 2X/DAY
     Route: 048
  8. CREON [Suspect]
     Active Substance: PANCRELIPASE AMYLASE\PANCRELIPASE LIPASE\PANCRELIPASE PROTEASE
     Dosage: UNK (36,000 UNIT CAPSULE, TAKE TWO CAPSULES BY MOUTH WITH EACH MEAL, ONE BY MOUTH WITH EACH SNACK)
     Route: 048
  9. CEPHALEXIN [Suspect]
     Active Substance: CEPHALEXIN
     Dosage: 500 MG
  10. DICYCLOMINE [Suspect]
     Active Substance: DICYCLOMINE HYDROCHLORIDE
     Dosage: 10 MG, 4X/DAY (TAKE 1 BY MOUTH FOUR TIMES A DAY AS NEEDED)
     Route: 048
  11. SUCRALFATE [Suspect]
     Active Substance: SUCRALFATE
     Dosage: 1 G, 2X/DAY (TAKE 1 TABLET TWICE A DAY ON EMPTY STOMACH)

REACTIONS (1)
  - Drug ineffective [Unknown]
